FAERS Safety Report 12234537 (Version 2)
Quarter: 2016Q2

REPORT INFORMATION
  Report Type: Spontaneous
  Country: US (occurrence: US)
  Receive Date: 20160404
  Receipt Date: 20160502
  Transmission Date: 20160815
  Serious: Yes (Hospitalization, Other)
  Sender: FDA-Public Use
  Company Number: US-MDT-ADR-2016-00618

PATIENT
  Age: 43 Year
  Sex: Female

DRUGS (3)
  1. BACLOFEN. [Suspect]
     Active Substance: BACLOFEN
     Dosage: 425.8MCG/DAY
     Route: 037
     Dates: start: 20151109, end: 20151110
  2. BACLOFEN. [Suspect]
     Active Substance: BACLOFEN
     Dosage: 575.2MCG/DAY
     Route: 037
     Dates: end: 20151109
  3. BACLOFEN. [Suspect]
     Active Substance: BACLOFEN
     Dosage: 212.9MCG/DAY
     Route: 037
     Dates: start: 20151110

REACTIONS (5)
  - Wound dehiscence [Unknown]
  - Escherichia infection [Unknown]
  - Incision site erythema [Unknown]
  - Medical device site infection [Unknown]
  - Incisional drainage [Unknown]
